FAERS Safety Report 9080956 (Version 1)
Quarter: 2013Q1

REPORT INFORMATION
  Report Type: Report from Study
  Country: US (occurrence: US)
  Receive Date: 20130130
  Receipt Date: 20130130
  Transmission Date: 20140127
  Serious: No
  Sender: FDA-Public Use
  Company Number: US-ABBOTT-12P-163-0974970-00

PATIENT
  Age: 24 Year
  Sex: Female

DRUGS (5)
  1. HUMIRA 40 MG/0.8 ML PEN [Suspect]
     Indication: CROHN^S DISEASE
     Dates: start: 20120413
  2. PREDNISONE [Suspect]
     Indication: PRODUCT USED FOR UNKNOWN INDICATION
     Dates: end: 20120625
  3. LIALDA [Concomitant]
     Indication: CROHN^S DISEASE
     Dosage: BID
  4. PROMETHAZINE [Concomitant]
     Indication: NAUSEA
     Dosage: PRN
  5. OMEPRAZOLE [Concomitant]
     Indication: GASTRITIS
     Dosage: BID
     Route: 048

REACTIONS (5)
  - Scar [Not Recovered/Not Resolved]
  - Injection site bruising [Not Recovered/Not Resolved]
  - Injection site erythema [Not Recovered/Not Resolved]
  - Injection site pruritus [Not Recovered/Not Resolved]
  - Erythema [Not Recovered/Not Resolved]
